FAERS Safety Report 24747332 (Version 1)
Quarter: 2024Q4

REPORT INFORMATION
  Report Type: Spontaneous
  Country: CH (occurrence: CH)
  Receive Date: 20241218
  Receipt Date: 20241218
  Transmission Date: 20250115
  Serious: Yes (Hospitalization)
  Sender: JOHNSON AND JOHNSON
  Company Number: CH-JNJFOC-20241242259

PATIENT
  Age: 29 Year
  Sex: Male

DRUGS (4)
  1. HALOPERIDOL [Suspect]
     Active Substance: HALOPERIDOL
     Indication: Psychotic disorder
     Route: 048
     Dates: start: 20241114, end: 20241117
  2. HALOPERIDOL [Suspect]
     Active Substance: HALOPERIDOL
     Route: 048
     Dates: start: 20241115
  3. HALOPERIDOL [Suspect]
     Active Substance: HALOPERIDOL
     Route: 048
     Dates: start: 20241116
  4. HALOPERIDOL [Suspect]
     Active Substance: HALOPERIDOL
     Route: 048
     Dates: start: 20241117

REACTIONS (6)
  - Muscle rigidity [Recovered/Resolved]
  - Hyperhidrosis [Recovered/Resolved]
  - Pyrexia [Recovered/Resolved]
  - Agitation [Recovered/Resolved]
  - Tachycardia [Recovered/Resolved]
  - Rhabdomyolysis [Recovering/Resolving]

NARRATIVE: CASE EVENT DATE: 20241117
